FAERS Safety Report 15190646 (Version 1)
Quarter: 2018Q3

REPORT INFORMATION
  Report Type: Spontaneous
  Country: US (occurrence: US)
  Receive Date: 20180724
  Receipt Date: 20180724
  Transmission Date: 20181010
  Serious: Yes (Hospitalization)
  Sender: FDA-Public Use
  Company Number: PHEH2018US029622

PATIENT
  Sex: Male

DRUGS (2)
  1. IRON [Concomitant]
     Active Substance: IRON
     Indication: PRODUCT USED FOR UNKNOWN INDICATION
     Route: 065
  2. TASIGNA [Suspect]
     Active Substance: NILOTINIB
     Indication: PRODUCT USED FOR UNKNOWN INDICATION
     Dosage: 150 MG, (150 MG 2AM AND 2 PM ) BID
     Route: 065

REACTIONS (5)
  - Headache [Recovered/Resolved]
  - Rectal haemorrhage [Unknown]
  - Diarrhoea [Unknown]
  - Abdominal discomfort [Unknown]
  - Headache [Unknown]
